FAERS Safety Report 21260242 (Version 1)
Quarter: 2022Q3

REPORT INFORMATION
  Report Type: Spontaneous
  Country: CA (occurrence: CA)
  Receive Date: 20220826
  Receipt Date: 20220826
  Transmission Date: 20221027
  Serious: Yes (Hospitalization)
  Sender: FDA-Public Use
  Company Number: None

PATIENT
  Age: 73 Year
  Sex: Female

DRUGS (1)
  1. PACLITAXEL [Suspect]
     Active Substance: PACLITAXEL
     Indication: Chemotherapy
     Dosage: LIQUID
     Route: 042

REACTIONS (7)
  - Cold sweat [Unknown]
  - Dyspnoea [Unknown]
  - Eye movement disorder [Unknown]
  - Flushing [Unknown]
  - Hypotension [Unknown]
  - Productive cough [Unknown]
  - Unresponsive to stimuli [Unknown]
